FAERS Safety Report 11962162 (Version 2)
Quarter: 2016Q2

REPORT INFORMATION
  Report Type: Spontaneous
  Country: TR (occurrence: TR)
  Receive Date: 20160126
  Receipt Date: 20160603
  Transmission Date: 20160815
  Serious: Yes (Other)
  Sender: FDA-Public Use
  Company Number: TR-WATSON-2016-00347

PATIENT
  Age: 13 Year
  Sex: Female

DRUGS (2)
  1. LEVETIRACETAM (UNKNOWN) [Suspect]
     Active Substance: LEVETIRACETAM
     Dosage: 10 MG/KG, DAILY
     Route: 065
  2. LEVETIRACETAM (UNKNOWN) [Suspect]
     Active Substance: LEVETIRACETAM
     Indication: BENIGN ROLANDIC EPILEPSY
     Dosage: 20 MG/KG, DAILY (500 MG/DAY)
     Route: 065

REACTIONS (1)
  - Rhabdomyolysis [Recovered/Resolved]
